FAERS Safety Report 8774325 (Version 1)
Quarter: 2012Q4

REPORT INFORMATION
  Report Type: 
  Country: SE (occurrence: SE)
  Receive Date: 20120907
  Receipt Date: 20120907
  Transmission Date: 20130627
  Serious: Yes (Hospitalization)
  Sender: FDA-Public Use
  Company Number: SE-PFIZER INC-2012216110

PATIENT
  Sex: Female
  Weight: 77.6 kg

DRUGS (25)
  1. GENOTROPIN [Suspect]
     Indication: HYPOPITUITARISM
     Dosage: 0.4 mg, 7/wk
     Route: 058
     Dates: start: 19990222
  2. LEVOTHYROXINE [Concomitant]
     Indication: BLOOD THYROID STIMULATING HORMONE DECREASED
     Dosage: UNK
     Dates: start: 19851001
  3. LEVOTHYROXINE [Concomitant]
     Indication: PRIMARY HYPOTHYROIDISM
  4. TRISEQUENS [Concomitant]
     Indication: BLOOD LUTEINISING HORMONE DECREASED
     Dosage: UNK
     Dates: start: 19870101
  5. TRISEQUENS [Concomitant]
     Indication: BLOOD FOLLICLE STIMULATING HORMONE DECREASED
  6. TRISEQUENS [Concomitant]
     Indication: HYPOGONADISM FEMALE
  7. DECA-DURABOL [Concomitant]
     Indication: BLOOD CORTICOTROPHIN DECREASED
     Dosage: UNK
     Dates: start: 19930801
  8. DEKADIN [Concomitant]
     Indication: BLOOD CORTICOTROPHIN DECREASED
     Dosage: UNK
     Dates: start: 19960101
  9. TROMBYL [Concomitant]
     Indication: PROPHYLAXIS
     Dosage: UNK
     Dates: start: 19970830
  10. KLIOGEST ^NOVO INDUSTRI^ [Concomitant]
     Indication: BLOOD LUTEINISING HORMONE DECREASED
     Dosage: UNK
     Dates: start: 19971001
  11. KLIOGEST ^NOVO INDUSTRI^ [Concomitant]
     Indication: BLOOD FOLLICLE STIMULATING HORMONE DECREASED
  12. KLIOGEST ^NOVO INDUSTRI^ [Concomitant]
     Indication: HYPOGONADISM FEMALE
  13. PROGYNON [Concomitant]
     Indication: BLOOD LUTEINISING HORMONE DECREASED
     Dosage: UNK
     Dates: start: 20000215
  14. PROGYNON [Concomitant]
     Indication: BLOOD FOLLICLE STIMULATING HORMONE DECREASED
  15. PROGYNON [Concomitant]
     Indication: HYPOGONADISM FEMALE
  16. SELOKEN ZOC [Concomitant]
     Indication: ARRHYTHMIA
     Dosage: UNK
     Dates: start: 20000414
  17. CORTISONE ACETATE [Concomitant]
     Indication: BLOOD CORTICOTROPHIN DECREASED
     Dosage: UNK
     Dates: start: 19851001
  18. TENORMIN [Concomitant]
     Indication: ESSENTIAL HYPERTENSION
     Dosage: UNK
     Dates: start: 20020212
  19. ZYLORIC ^FRESENIUS^ [Concomitant]
     Indication: URETHRAL DISORDER
     Dosage: UNK
     Dates: start: 19950101
  20. ZYLORIC ^FRESENIUS^ [Concomitant]
     Indication: URINARY TRACT DISORDER
  21. SALURES-K [Concomitant]
     Indication: HYPERTONIA
     Dosage: UNK
     Dates: start: 20050919
  22. LEVAXIN [Concomitant]
     Indication: BLOOD THYROID STIMULATING HORMONE DECREASED
     Dosage: UNK
     Dates: start: 19980825
  23. LEVAXIN [Concomitant]
     Indication: PRIMARY HYPOTHYROIDISM
  24. AERIUS [Concomitant]
     Indication: ANTIALLERGIC THERAPY
     Dosage: UNK
     Dates: start: 20060515
  25. VOLTAREN [Concomitant]
     Indication: PAIN
     Dosage: UNK
     Dates: start: 20060820, end: 20060830

REACTIONS (1)
  - Rectocele [Unknown]
